FAERS Safety Report 20398799 (Version 2)
Quarter: 2022Q1

REPORT INFORMATION
  Report Type: Spontaneous
  Country: US (occurrence: US)
  Receive Date: 20220131
  Receipt Date: 20220201
  Transmission Date: 20220423
  Serious: No
  Sender: FDA-Public Use
  Company Number: US-ABBVIE-21K-163-3815631-00

PATIENT
  Age: 41 Year
  Sex: Female
  Weight: 88.530 kg

DRUGS (13)
  1. HUMIRA [Suspect]
     Active Substance: ADALIMUMAB
     Indication: Granuloma annulare
     Route: 058
     Dates: start: 202102
  2. TRULICITY [Concomitant]
     Active Substance: DULAGLUTIDE
     Indication: Diabetes mellitus
  3. GABAPENTIN [Concomitant]
     Active Substance: GABAPENTIN
     Indication: Neuropathy peripheral
  4. LOSARTAN [Concomitant]
     Active Substance: LOSARTAN
     Indication: Diabetes mellitus
  5. AMITRIPTYLINE [Concomitant]
     Active Substance: AMITRIPTYLINE
     Indication: Neuropathy peripheral
  6. VITAMIN B12 [Concomitant]
     Active Substance: CYANOCOBALAMIN
     Indication: Supplementation therapy
  7. CALCIUM [Concomitant]
     Active Substance: CALCIUM
     Indication: Supplementation therapy
  8. VITAMIN D [Concomitant]
     Active Substance: VITAMIN D NOS
     Indication: Supplementation therapy
  9. ATORVASTATIN [Concomitant]
     Active Substance: ATORVASTATIN
     Indication: Blood cholesterol abnormal
  10. TOPAMAX [Concomitant]
     Active Substance: TOPIRAMATE
     Indication: Migraine
  11. SUMATRIPTAN [Concomitant]
     Active Substance: SUMATRIPTAN
     Indication: Migraine
     Dosage: SUMATRIPTAN PEN?AS NEEDED
  12. COVID-19 VACCINE [Concomitant]
     Indication: COVID-19 immunisation
     Dosage: MODERNA
     Route: 030
     Dates: start: 20210107, end: 20210107
  13. COVID-19 VACCINE [Concomitant]
     Dosage: MODERNA
     Route: 030
     Dates: start: 20210224, end: 20210224

REACTIONS (2)
  - Off label use [Not Recovered/Not Resolved]
  - Device issue [Unknown]

NARRATIVE: CASE EVENT DATE: 20210201
